FAERS Safety Report 5360649-9 (Version None)
Quarter: 2007Q2

REPORT INFORMATION
  Report Type: 
  Country: None (occurrence: None)
  Receive Date: 20070618
  Receipt Date: 20070606
  Transmission Date: 20071010
  Serious: Yes (Disabling)
  Sender: FDA-Public Use
  Company Number: GB-ROCHE-494640

PATIENT
  Age: 39 Year
  Sex: Female
  Weight: 95.8 kg

DRUGS (5)
  1. XENICAL [Suspect]
     Indication: OBESITY
     Route: 048
     Dates: start: 20060905
  2. PROPRANOLOL [Concomitant]
  3. PRAVASTATIN [Concomitant]
  4. BENDROFLUAZIDE [Concomitant]
  5. RAMIPRIL [Concomitant]

REACTIONS (3)
  - FATIGUE [None]
  - HEADACHE [None]
  - LOSS OF CONSCIOUSNESS [None]
